FAERS Safety Report 21588893 (Version 1)
Quarter: 2022Q4

REPORT INFORMATION
  Report Type: Spontaneous
  Country: US (occurrence: US)
  Receive Date: 20221114
  Receipt Date: 20221114
  Transmission Date: 20230113
  Serious: Yes (Other)
  Sender: FDA-Public Use
  Company Number: US-APOTEX-2022AP015324

PATIENT
  Age: 67 Year
  Sex: Male

DRUGS (2)
  1. ENOXAPARIN [Suspect]
     Active Substance: ENOXAPARIN
     Indication: Acute myocardial infarction
     Dosage: 110 MILLIGRAM, BID
     Route: 058
  2. ENOXAPARIN [Suspect]
     Active Substance: ENOXAPARIN
     Dosage: 110 MILLIGRAM, BID
     Route: 065

REACTIONS (1)
  - Bullous haemorrhagic dermatosis [Recovered/Resolved]
